FAERS Safety Report 25726941 (Version 1)
Quarter: 2025Q3

REPORT INFORMATION
  Report Type: Spontaneous
  Country: EU (occurrence: EU)
  Receive Date: 20250826
  Receipt Date: 20250826
  Transmission Date: 20251021
  Serious: Yes (Death, Life-Threatening, Hospitalization, Disabling, Other)
  Sender: FRESENIUS KABI
  Company Number: None

PATIENT
  Age: 69 Year
  Sex: Female
  Weight: 59 kg

DRUGS (8)
  1. PACLITAXEL [Suspect]
     Active Substance: PACLITAXEL
     Indication: Ovarian cancer
     Route: 042
     Dates: start: 20250610, end: 20250610
  2. PACLITAXEL [Suspect]
     Active Substance: PACLITAXEL
     Route: 042
     Dates: start: 20250714, end: 20250714
  3. CARBOPLATIN [Suspect]
     Active Substance: CARBOPLATIN
     Indication: Ovarian cancer
     Dosage: ADMINISTERED TWICE?FOA: CONCENTRATE FOR SOLUTION FOR INFUSION
     Route: 042
     Dates: start: 20250610, end: 20250714
  4. Duspatalin Retard 200mg [Concomitant]
     Indication: Product used for unknown indication
  5. Cerucal 10mg [Concomitant]
     Indication: Product used for unknown indication
  6. Novetron 8mg [Concomitant]
     Indication: Vomiting
  7. Paralen [Concomitant]
     Indication: Pain
  8. Helicid 40mg [Concomitant]
     Indication: Product used for unknown indication
     Dosage: 1-0-0

REACTIONS (1)
  - Febrile neutropenia [Fatal]

NARRATIVE: CASE EVENT DATE: 20250718
